FAERS Safety Report 6899313-3 (Version None)
Quarter: 2010Q3

REPORT INFORMATION
  Report Type: 
  Country: None (occurrence: None)
  Receive Date: 20100802
  Receipt Date: 20090210
  Transmission Date: 20110219
  Serious: Yes (Other)
  Sender: FDA-Public Use
  Company Number: US-PFIZER INC-2007107017

PATIENT
  Sex: Female
  Weight: 53.5 kg

DRUGS (7)
  1. LYRICA [Suspect]
     Indication: FIBROMYALGIA
     Dosage: 75 MG, 1X/DAY
     Dates: start: 20071201, end: 20080101
  2. CELEBREX [Concomitant]
  3. OXYCONTIN [Concomitant]
  4. DILAUDID [Concomitant]
  5. TIGAN [Concomitant]
  6. PROMETHAZINE [Concomitant]
  7. VALIUM [Concomitant]

REACTIONS (3)
  - HALLUCINATION [None]
  - MENTAL STATUS CHANGES [None]
  - PAIN [None]
